FAERS Safety Report 7831756-3 (Version None)
Quarter: 2011Q4

REPORT INFORMATION
  Report Type: 
  Country: None (occurrence: None)
  Receive Date: 20111021
  Receipt Date: 20111013
  Transmission Date: 20120403
  Serious: Yes (Other)
  Sender: FDA-Public Use
  Company Number: US-ASTRAZENECA-2011SE61588

PATIENT
  Age: 50 Year
  Sex: Female

DRUGS (2)
  1. SYMBICORT [Suspect]
     Dosage: 160/4.5 MCG ONCE/SINGLE ADMINISTRATION
     Route: 055
     Dates: start: 20110901
  2. ASTELIN [Concomitant]
     Route: 045

REACTIONS (2)
  - SWELLING [None]
  - VIITH NERVE PARALYSIS [None]
